FAERS Safety Report 17797965 (Version 2)
Quarter: 2020Q2

REPORT INFORMATION
  Report Type: Spontaneous
  Country: US (occurrence: US)
  Receive Date: 20200518
  Receipt Date: 20200612
  Transmission Date: 20200714
  Serious: No
  Sender: FDA-Public Use
  Company Number: US-PFIZER INC-2020127362

PATIENT
  Age: 85 Year
  Sex: Female

DRUGS (3)
  1. INLYTA [Suspect]
     Active Substance: AXITINIB
     Indication: RENAL CANCER
     Dosage: 3 MG
  2. INLYTA [Suspect]
     Active Substance: AXITINIB
     Dosage: 3 MG, 2X/DAY
  3. INLYTA [Suspect]
     Active Substance: AXITINIB
     Indication: UTERINE CANCER
     Dosage: 1 MG

REACTIONS (2)
  - Stomatitis [Unknown]
  - Noninfective gingivitis [Unknown]
